FAERS Safety Report 4530174-3 (Version None)
Quarter: 2004Q4

REPORT INFORMATION
  Report Type: 
  Country: None (occurrence: None)
  Receive Date: 20041215
  Receipt Date: 20041207
  Transmission Date: 20050328
  Serious: Yes (Other)
  Sender: FDA-Public Use
  Company Number: HQWYE778207DEC04

PATIENT
  Age: 37 Year
  Sex: Female

DRUGS (5)
  1. INIPOMP (PANTOPRAZOLE, TABLET, DELAYED RELEASE) [Suspect]
     Indication: COLITIS
     Dosage: 40 MG 1X PER 1 DAY; ORAL
     Route: 048
     Dates: start: 20040101
  2. INIPOMP (PANTOPRAZOLE, TABLET, DELAYED RELEASE) [Suspect]
     Indication: GASTROENTERITIS NONINFECTIOUS
     Dosage: 40 MG 1X PER 1 DAY; ORAL
     Route: 048
     Dates: start: 20040101
  3. PHILOROGLUCINOL [Concomitant]
  4. SMECTITE [Concomitant]
  5. SACCHARIN SODIUM [Concomitant]

REACTIONS (2)
  - ERYTHEMA MULTIFORME [None]
  - ERYTHEMA NODOSUM [None]
